FAERS Safety Report 18100385 (Version 1)
Quarter: 2020Q3

REPORT INFORMATION
  Report Type: Report from Study
  Country: US (occurrence: US)
  Receive Date: 20200731
  Receipt Date: 20200731
  Transmission Date: 20201103
  Serious: Yes (Death, Hospitalization, Other)
  Sender: FDA-Public Use
  Company Number: US-BRISTOL-MYERS SQUIBB COMPANY-BMS-2020-057123

PATIENT
  Age: 72 Year
  Sex: Male
  Weight: 120.64 kg

DRUGS (23)
  1. NORCO [Concomitant]
     Active Substance: ACETAMINOPHEN\HYDROCODONE BITARTRATE
     Indication: PAIN
     Dosage: TAKE ONE TABLET BY MOUTH EVERY 4 TO 6 HOURS AS NEEDED
     Route: 048
     Dates: start: 20200709
  2. PROVENTIL HFA [Concomitant]
     Active Substance: ALBUTEROL SULFATE
     Indication: PRODUCT USED FOR UNKNOWN INDICATION
     Dosage: INHALE 1?2 PUFFS EVERY 4?6 HOURS PRN
     Route: 065
     Dates: start: 20190118
  3. NORVASC [Concomitant]
     Active Substance: AMLODIPINE BESYLATE
     Indication: HYPERTENSION
     Dosage: 5 MILLIGRAM, QD
     Route: 048
     Dates: start: 20200710
  4. LIPITOR [Concomitant]
     Active Substance: ATORVASTATIN CALCIUM
     Indication: BLOOD CHOLESTEROL INCREASED
     Dosage: 1 TAB, QD
     Route: 048
     Dates: start: 20200206
  5. PROTONIX [Concomitant]
     Active Substance: PANTOPRAZOLE SODIUM
     Indication: GASTROOESOPHAGEAL REFLUX DISEASE
     Dosage: 1 TAB, QD, PRN
     Route: 048
     Dates: start: 20191202
  6. NORVASC [Concomitant]
     Active Substance: AMLODIPINE BESYLATE
     Dosage: 10 MILLIGRAM, QD
     Route: 048
     Dates: start: 20200715
  7. ACETYLSALICYLIC ACID;CALCIUM CARBONATE;MAGNESIUM CARBONATE;MAGNESIUM O [Concomitant]
     Indication: PAIN
  8. LASIX [Concomitant]
     Active Substance: FUROSEMIDE
     Indication: OEDEMA
     Dosage: 40 MILLIGRAM, QD, PRN
     Route: 048
     Dates: start: 20180709
  9. VOROLANIB [Suspect]
     Active Substance: VOROLANIB
     Indication: NEOPLASM
     Dosage: 200 MILLIGRAM, QD
     Route: 048
     Dates: start: 20200626, end: 20200709
  10. ACETYLSALICYLIC ACID;CALCIUM CARBONATE;MAGNESIUM CARBONATE;MAGNESIUM O [Concomitant]
     Indication: THROMBOSIS PROPHYLAXIS
     Dosage: 81 MILLIGRAM (BUFFERED 81 MG TAB), QD
     Route: 048
     Dates: start: 20060809
  11. LASIX [Concomitant]
     Active Substance: FUROSEMIDE
     Dosage: 20 MILLIGRAM, BID
     Route: 048
     Dates: start: 20180709
  12. NITROSTAT [Concomitant]
     Active Substance: NITROGLYCERIN
     Indication: CHEST PAIN
     Dosage: DISSOLVE 1 TABLET UNDER TONGUE EVERY 5 MINUTES UP TO 3 DOSES FOR CHEST PAIN. GO TO ER IF NOT RELIEVE
     Route: 065
     Dates: start: 20190909
  13. GLYCOLAX [Concomitant]
     Active Substance: POLYETHYLENE GLYCOL 3350
     Indication: CONSTIPATION
     Dosage: TAKE I CAPFUL IN 8OZ GLASS OF FLUID DAILY AS NEEDED
     Route: 065
     Dates: start: 20180719
  14. NIVOLUMAB [Suspect]
     Active Substance: NIVOLUMAB
     Indication: NEOPLASM
     Dosage: 240 MILLIGRAM, Q2WK
     Route: 042
     Dates: start: 20200626
  15. VALIUM [Concomitant]
     Active Substance: DIAZEPAM
     Indication: ANXIETY
     Dosage: 1 TAB, PRN (EVENING)
     Route: 048
     Dates: start: 20190417
  16. NEURONTIN [Concomitant]
     Active Substance: GABAPENTIN
     Indication: NEUROPATHY PERIPHERAL
     Dosage: 1 TAB (600 MG TOTAL), TID
     Route: 048
     Dates: start: 20200407
  17. ZOFRAN [Concomitant]
     Active Substance: ONDANSETRON HYDROCHLORIDE
     Indication: NAUSEA
     Dosage: LET DISSOLVE ON OR UNDER TONGUE (OR SWALLOW IF PREFERRED) I TABLET EVERY 6 HRS AS NEEDED
     Route: 048
     Dates: start: 20200708
  18. K?DUR [Concomitant]
     Active Substance: POTASSIUM CHLORIDE
     Indication: PRODUCT USED FOR UNKNOWN INDICATION
     Dosage: UNK
     Route: 065
  19. GLUCOPHAGE [Concomitant]
     Active Substance: METFORMIN HYDROCHLORIDE
     Indication: DIABETES MELLITUS
     Dosage: UNK UNK, QD? BY MOUTH DAILY WITH BREAKFAST
     Route: 048
     Dates: start: 20200310
  20. NYAMYC [Concomitant]
     Active Substance: NYSTATIN
     Indication: FUNGAL INFECTION
     Dosage: TOPICAL POWDER, APPLY TOPICALLY 2 (TWO) TIMES A DAY, IF NEEDED
     Route: 065
     Dates: start: 20200605
  21. CARDIZEM CD [Concomitant]
     Active Substance: DILTIAZEM HYDROCHLORIDE
     Indication: PRODUCT USED FOR UNKNOWN INDICATION
     Dosage: TAKE ONE CAPSULE (24 HR CAPSULE) (1120 MG TOTAL) BY MOUTH ONE (1) TIME A DAY
     Route: 048
     Dates: start: 20190909
  22. DUONEB [Concomitant]
     Active Substance: ALBUTEROL SULFATE\IPRATROPIUM BROMIDE
     Indication: CHRONIC OBSTRUCTIVE PULMONARY DISEASE
     Dosage: 0.5?2.5 MG/3 ML NEBULIZER SOLUTION, TAKE 3 ML BY NEBULIZATION AS NEEDED
     Route: 065
     Dates: start: 20200218
  23. POTASSIUM CHLORIDE. [Concomitant]
     Active Substance: POTASSIUM CHLORIDE
     Indication: PROPHYLAXIS
     Dosage: (K?DUR,KLOR?CON)? TAKE 20 MEQ BY MOUTH AS NEEDED
     Route: 048
     Dates: start: 20070622

REACTIONS (3)
  - Death [Fatal]
  - Inappropriate antidiuretic hormone secretion [Recovered/Resolved]
  - Dizziness [Recovered/Resolved]

NARRATIVE: CASE EVENT DATE: 20200710
